FAERS Safety Report 13111556 (Version 1)
Quarter: 2017Q1

REPORT INFORMATION
  Report Type: Spontaneous
  Country: US (occurrence: US)
  Receive Date: 20170112
  Receipt Date: 20170112
  Transmission Date: 20170428
  Serious: Yes (Other)
  Sender: FDA-Public Use
  Company Number: US-TEVA-728394USA

PATIENT
  Sex: Female

DRUGS (3)
  1. PROPRANOLOL W/HYDROCHLOROTHIAZIDE [Suspect]
     Active Substance: HYDROCHLOROTHIAZIDE\PROPRANOLOL
     Indication: ARRHYTHMIA
  2. PROPRANOLOL W/HYDROCHLOROTHIAZIDE [Suspect]
     Active Substance: HYDROCHLOROTHIAZIDE\PROPRANOLOL
     Indication: HYPERTENSION
     Dosage: 240 MILLIGRAM DAILY;
     Route: 065
  3. PROPRANOLOL W/HYDROCHLOROTHIAZIDE [Suspect]
     Active Substance: HYDROCHLOROTHIAZIDE\PROPRANOLOL
     Indication: MIGRAINE

REACTIONS (2)
  - Product use issue [Unknown]
  - Transient ischaemic attack [Unknown]
